FAERS Safety Report 10985086 (Version 1)
Quarter: 2015Q2

REPORT INFORMATION
  Report Type: Spontaneous
  Country: US (occurrence: US)
  Receive Date: 20150404
  Receipt Date: 20150404
  Transmission Date: 20150821
  Serious: No
  Sender: FDA-Public Use
  Company Number: US-ASTRAZENECA-2015SE29259

PATIENT
  Age: 24868 Day
  Sex: Female
  Weight: 90.7 kg

DRUGS (1)
  1. BYDUREON [Suspect]
     Active Substance: EXENATIDE
     Indication: TYPE 2 DIABETES MELLITUS
     Route: 058
     Dates: start: 20150130, end: 20150312

REACTIONS (12)
  - Hypophagia [Unknown]
  - Feeling hot [Unknown]
  - Erythema [Unknown]
  - Malaise [Unknown]
  - Abdominal distension [Unknown]
  - Abdominal pain upper [Unknown]
  - Injection site mass [Unknown]
  - Fatigue [Unknown]
  - Burning sensation [Unknown]
  - Eructation [Unknown]
  - Asthenia [Unknown]
  - Hypersensitivity [Unknown]

NARRATIVE: CASE EVENT DATE: 20150313
